FAERS Safety Report 8282634-X (Version None)
Quarter: 2012Q2

REPORT INFORMATION
  Report Type: 
  Country: None (occurrence: None)
  Receive Date: 20120413
  Receipt Date: 20120410
  Transmission Date: 20120825
  Serious: No
  Sender: FDA-Public Use
  Company Number: US-PFIZER INC-2012089421

PATIENT
  Sex: Female
  Weight: 50.79 kg

DRUGS (1)
  1. FLAGYL [Suspect]

REACTIONS (2)
  - GASTROINTESTINAL DISORDER [None]
  - DIZZINESS [None]
